FAERS Safety Report 17199913 (Version 2)
Quarter: 2019Q4

REPORT INFORMATION
  Report Type: Spontaneous
  Country: DE (occurrence: DE)
  Receive Date: 20191226
  Receipt Date: 20191230
  Transmission Date: 20200122
  Serious: Yes (Hospitalization, Other)
  Sender: FDA-Public Use
  Company Number: DE-DEXPHARM-20191203

PATIENT
  Age: 15 Year
  Sex: Female
  Weight: 70 kg

DRUGS (3)
  1. LAMOTRIGIN 50 MG HEUMANN 50 MG TABLETTEN HEUNET [Concomitant]
     Indication: EPILEPSY
     Route: 048
     Dates: start: 20191128
  2. LEVETIRACETAM PUREN 500 MG FILMTABLETTEN [Suspect]
     Active Substance: LEVETIRACETAM
     Indication: EPILEPSY
     Dosage: 2X
     Route: 048
     Dates: start: 201908
  3. LAMOTRIGIN ARISTO 100 MG TABLETTEN [Suspect]
     Active Substance: LAMOTRIGINE
     Indication: EPILEPSY
     Dosage: 2X
     Route: 048
     Dates: start: 201908

REACTIONS (1)
  - Drug ineffective [Unknown]
